FAERS Safety Report 5702350-5 (Version None)
Quarter: 2008Q2

REPORT INFORMATION
  Report Type: 
  Country: None (occurrence: None)
  Receive Date: 20080411
  Receipt Date: 20080331
  Transmission Date: 20081010
  Serious: Yes (Death, Hospitalization)
  Sender: FDA-Public Use
  Company Number: DE-AMGEN-UK271224

PATIENT
  Sex: Female
  Weight: 70 kg

DRUGS (7)
  1. NEULASTA [Suspect]
     Indication: CHEMOTHERAPY
     Route: 058
     Dates: start: 20080314, end: 20080314
  2. CARBOPLATIN [Concomitant]
     Route: 042
     Dates: start: 20080313, end: 20080313
  3. PACLITAXEL [Concomitant]
     Route: 042
     Dates: start: 20080313, end: 20080313
  4. GRANISETRON HCL [Concomitant]
     Route: 042
     Dates: start: 20080313, end: 20080313
  5. RANITIDINE [Concomitant]
     Route: 042
     Dates: start: 20080313, end: 20080313
  6. CLEMASTINE FUMARATE [Concomitant]
     Route: 042
     Dates: start: 20080313, end: 20080313
  7. AMIFOSTINE [Concomitant]
     Route: 042
     Dates: start: 20080313, end: 20080313

REACTIONS (8)
  - CARDIAC FAILURE [None]
  - CIRCULATORY COLLAPSE [None]
  - DYSPNOEA [None]
  - HYPOXIA [None]
  - MYALGIA [None]
  - MYOCARDIAL INFARCTION [None]
  - PULMONARY OEDEMA [None]
  - PYREXIA [None]
